FAERS Safety Report 6028352-X (Version None)
Quarter: 2009Q1

REPORT INFORMATION
  Report Type: 
  Country: None (occurrence: None)
  Receive Date: 20090106
  Receipt Date: 20081229
  Transmission Date: 20090719
  Serious: Yes (Other)
  Sender: FDA-Public Use
  Company Number: GB-ABBOTT-08P-167-0495088-00

PATIENT
  Age: 56 Year
  Sex: Female
  Weight: 90 kg

DRUGS (6)
  1. REDUCTIL 10MG [Suspect]
     Indication: OBESITY
     Dosage: TAKEN IN MORNING EVERY DAY
     Dates: start: 20081114, end: 20081126
  2. RAMIPRIL [Concomitant]
     Indication: HYPERTENSION
  3. IBUPROFEN TABLETS [Concomitant]
     Indication: BACK PAIN
  4. AMITRIPTYLINE HCL [Concomitant]
     Indication: DRUG USE FOR UNKNOWN INDICATION
     Dosage: BID, STOPPED WHILE TAKING REDUCTIL
  5. COD LIVER OIL [Concomitant]
     Indication: DRUG USE FOR UNKNOWN INDICATION
  6. GLUCOSAMINE SULPHATE [Concomitant]
     Indication: DRUG USE FOR UNKNOWN INDICATION

REACTIONS (5)
  - HEADACHE [None]
  - NAUSEA [None]
  - PAIN [None]
  - PRURITUS [None]
  - SWELLING [None]
